FAERS Safety Report 12968091 (Version 1)
Quarter: 2016Q4

REPORT INFORMATION
  Report Type: Report from Study
  Country: CA (occurrence: CA)
  Receive Date: 20161123
  Receipt Date: 20161123
  Transmission Date: 20170207
  Serious: Yes (Other)
  Sender: FDA-Public Use
  Company Number: CA-AMGEN-CANSL2016162753

PATIENT
  Age: 81 Year
  Sex: Male

DRUGS (8)
  1. VITAMIN D [Concomitant]
     Active Substance: CHOLECALCIFEROL
  2. PROLIA [Suspect]
     Active Substance: DENOSUMAB
     Indication: PRODUCT USED FOR UNKNOWN INDICATION
     Dosage: UNK
     Route: 065
     Dates: start: 20161103
  3. ALLOPURINOL. [Concomitant]
     Active Substance: ALLOPURINOL
     Dosage: 200 MG, UNK
  4. MICARDIS [Concomitant]
     Active Substance: TELMISARTAN
     Dosage: 80 MG, UNK
  5. CALTRATE [Concomitant]
     Active Substance: CALCIUM CARBONATE
  6. DILTIAZEM. [Concomitant]
     Active Substance: DILTIAZEM
     Dosage: 120 MG, UNK
  7. MULTIVITAMIN [Concomitant]
     Active Substance: VITAMINS
  8. SALMON OIL [Concomitant]
     Active Substance: FISH OIL

REACTIONS (3)
  - Insomnia [Recovered/Resolved]
  - Oropharyngeal pain [Unknown]
  - Lung infection [Unknown]

NARRATIVE: CASE EVENT DATE: 201611
